FAERS Safety Report 4385771-5 (Version None)
Quarter: 2004Q2

REPORT INFORMATION
  Report Type: 
  Country: None (occurrence: None)
  Receive Date: 20040628
  Receipt Date: 20040416
  Transmission Date: 20050107
  Serious: Yes (Death, Life-Threatening, Hospitalization, Disabling, Other)
  Sender: FDA-Public Use
  Company Number: US-MERCK-0404USA01681

PATIENT
  Age: 89 Year
  Sex: Male
  Weight: 76 kg

DRUGS (12)
  1. TYLENOL [Concomitant]
     Indication: PAIN
     Route: 048
  2. FOSAMAX [Concomitant]
     Route: 048
  3. NORVASC [Concomitant]
     Indication: HYPERTENSION
     Route: 048
  4. ASPIRIN [Concomitant]
     Route: 065
  5. LIPITOR [Concomitant]
     Route: 065
  6. HYZAAR [Concomitant]
     Indication: HYPERTENSION
     Route: 048
  7. TOPROL-XL [Concomitant]
     Route: 065
  8. DARVON [Concomitant]
     Indication: PAIN
     Route: 048
     Dates: end: 20030101
  9. VIOXX [Suspect]
     Indication: BACK PAIN
     Route: 048
     Dates: start: 20030901, end: 20040201
  10. VIOXX [Suspect]
     Route: 048
     Dates: start: 20030101, end: 20030901
  11. VIOXX [Suspect]
     Indication: SPINAL COLUMN STENOSIS
     Route: 048
     Dates: start: 20030901, end: 20040201
  12. VIOXX [Suspect]
     Route: 048
     Dates: start: 20030101, end: 20030901

REACTIONS (7)
  - CEREBROVASCULAR ACCIDENT [None]
  - DRUG INEFFECTIVE [None]
  - DUODENAL ULCER PERFORATION [None]
  - GASTROINTESTINAL HAEMORRHAGE [None]
  - POST PROCEDURAL COMPLICATION [None]
  - RESPIRATORY FAILURE [None]
  - SPINAL COLUMN STENOSIS [None]
